FAERS Safety Report 4415793-7 (Version None)
Quarter: 2004Q2

REPORT INFORMATION
  Report Type: 
  Country: None (occurrence: None)
  Receive Date: 20040621
  Receipt Date: 20040308
  Transmission Date: 20050107
  Serious: Yes (Death)
  Sender: FDA-Public Use
  Company Number: A-US2002-00549

PATIENT
  Age: 70 Year
  Sex: Female
  Weight: 50.8 kg

DRUGS (12)
  1. TRACLEER [Suspect]
     Indication: PULMONARY HYPERTENSION
     Dosage: 62.5 MG, BID, ORAL
     Route: 048
     Dates: start: 20020220
  2. COUMADIN [Concomitant]
  3. FOSAMAX [Concomitant]
  4. PREMARIN [Concomitant]
  5. VERAPAMIL [Concomitant]
  6. LASIX [Concomitant]
  7. POTASSIUM (POTASSIUM) [Concomitant]
  8. TEMAZEPAM [Concomitant]
  9. NOTUSS (HYDROCODONE, PSEUDOEPHEDRINE, CHLORPHENAMINE) [Concomitant]
  10. MULTIVITAMIN [Concomitant]
  11. CALCIUM (CALCIUM) [Concomitant]
  12. VITAMIN E [Concomitant]

REACTIONS (2)
  - DEATH [None]
  - OEDEMA PERIPHERAL [None]
